FAERS Safety Report 8069196-7 (Version None)
Quarter: 2011Q4

REPORT INFORMATION
  Report Type: 
  Country: None (occurrence: None)
  Receive Date: 20111221
  Receipt Date: 20111024
  Transmission Date: 20120403
  Serious: Yes (Other)
  Sender: FDA-Public Use
  Company Number: PHEH2011US07650

PATIENT
  Age: 25 Year
  Sex: Male

DRUGS (3)
  1. EXJADE [Suspect]
     Indication: TRANSFUSION
     Dosage: 500 MG,BID, ORAL
     Route: 048
  2. EXJADE [Suspect]
     Indication: HAEMOCHROMATOSIS
     Dosage: 500 MG,BID, ORAL
     Route: 048
  3. RED BLOOD CELLS, CONCENTRATED (RED BLOOD CELLS, CONCENTRATED) [Concomitant]

REACTIONS (3)
  - HAEMOGLOBIN DECREASED [None]
  - HAEMATOCRIT DECREASED [None]
  - SERUM FERRITIN INCREASED [None]
